FAERS Safety Report 15739856 (Version 1)
Quarter: 2018Q4

REPORT INFORMATION
  Report Type: Report from Study
  Country: KR (occurrence: KR)
  Receive Date: 20181219
  Receipt Date: 20181219
  Transmission Date: 20190205
  Serious: Yes (Hospitalization)
  Sender: FDA-Public Use
  Company Number: KR-SAKK-2018SA319994AA

PATIENT
  Age: 50 Year
  Sex: Male
  Weight: 60 kg

DRUGS (7)
  1. VESSEL DUE F [Concomitant]
     Active Substance: SULODEXIDE
     Indication: UNEVALUABLE EVENT
     Dosage: 25 MG QD
     Route: 048
     Dates: start: 20180328
  2. MOVELOXIN [Concomitant]
     Indication: PROPHYLAXIS
     Dosage: 400 MG, QD
     Route: 048
     Dates: start: 20181006, end: 20181012
  3. INSULIN GLARGINE [Suspect]
     Active Substance: INSULIN GLARGINE
     Indication: DIABETES MELLITUS
     Dosage: 28 U, QD
     Route: 058
     Dates: start: 20180901, end: 20181005
  4. TENELIGLIPTIN HYDROBROMIDE [Concomitant]
     Active Substance: TENELIGLIPTIN HYDROBROMIDE ANHYDROUS
     Indication: DIABETES MELLITUS
     Dosage: 2 DF, QD
     Route: 048
     Dates: start: 20180528
  5. ROSUVAMIBE [Concomitant]
     Indication: HYPERCHOLESTEROLAEMIA
     Dosage: 1 DF OF 10/5 MG, QD
     Route: 048
     Dates: start: 20180528
  6. NEWHYALUNI [Concomitant]
     Indication: PROPHYLAXIS
     Dosage: 4 DROP, QD
     Route: 047
     Dates: start: 20180328
  7. MEDILAC DS [Concomitant]
     Dosage: 500 MG, QD
     Route: 048
     Dates: start: 20181006, end: 20181012

REACTIONS (3)
  - Visual impairment [Recovered/Resolved]
  - Vitreous haemorrhage [Recovered/Resolved]
  - Blindness [Recovered/Resolved]

NARRATIVE: CASE EVENT DATE: 20180910
